FAERS Safety Report 9140694 (Version 1)
Quarter: 2013Q1

REPORT INFORMATION
  Report Type: Spontaneous
  Country: US (occurrence: US)
  Receive Date: 20130305
  Receipt Date: 20130305
  Transmission Date: 20140127
  Serious: Yes (Other)
  Sender: FDA-Public Use
  Company Number: US-BAYER-2013-026785

PATIENT
  Sex: Female

DRUGS (3)
  1. BETASERON [Suspect]
     Dosage: 0.3 MG, UNK
  2. ZOVIA [Concomitant]
     Dosage: 1/35E
  3. ZYRTEC-D [Concomitant]
     Dosage: 5-120 MG

REACTIONS (1)
  - Drug resistance [Unknown]
